FAERS Safety Report 10714472 (Version 1)
Quarter: 2015Q1

REPORT INFORMATION
  Report Type: Spontaneous
  Country: US (occurrence: US)
  Receive Date: 20150115
  Receipt Date: 20150115
  Transmission Date: 20150721
  Serious: No
  Sender: FDA-Public Use
  Company Number: US-ASTELLAS-2014US019617

PATIENT
  Sex: Female

DRUGS (1)
  1. MYRBETRIQ [Suspect]
     Active Substance: MIRABEGRON
     Indication: PRODUCT USED FOR UNKNOWN INDICATION
     Dosage: 25 MG DAILY, UNKNOWN FREQ.
     Route: 065
     Dates: start: 20141118

REACTIONS (7)
  - Decreased appetite [Unknown]
  - Ageusia [Unknown]
  - Enuresis [Unknown]
  - Dry mouth [Unknown]
  - Influenza like illness [Unknown]
  - Weight decreased [Unknown]
  - Drug hypersensitivity [Unknown]

NARRATIVE: CASE EVENT DATE: 2014
